FAERS Safety Report 4866798-3 (Version None)
Quarter: 2005Q4

REPORT INFORMATION
  Report Type: 
  Country: None (occurrence: None)
  Receive Date: 20051222
  Receipt Date: 20051213
  Transmission Date: 20060501
  Serious: Yes (Hospitalization)
  Sender: FDA-Public Use
  Company Number: 2005168993

PATIENT
  Sex: Male

DRUGS (2)
  1. INSPRA [Suspect]
     Indication: ILL-DEFINED DISORDER
     Dosage: ORAL
     Route: 048
  2. SPIRONOLACTONE [Concomitant]

REACTIONS (2)
  - GYNAECOMASTIA [None]
  - PURPURA [None]
